FAERS Safety Report 9696417 (Version 1)
Quarter: 2013Q4

REPORT INFORMATION
  Report Type: Spontaneous
  Country: US (occurrence: US)
  Receive Date: 20131119
  Receipt Date: 20131119
  Transmission Date: 20140711
  Serious: Yes (Other)
  Sender: FDA-Public Use
  Company Number: US-PFIZER INC-2013328317

PATIENT
  Sex: Male

DRUGS (1)
  1. ADVIL [Suspect]
     Indication: ABDOMINAL DISCOMFORT
     Dosage: UNK, 1X/DAY
     Dates: start: 20131114

REACTIONS (4)
  - Off label use [Unknown]
  - Haemorrhage [Unknown]
  - Blister [Unknown]
  - Blood pressure abnormal [Unknown]
